FAERS Safety Report 12464481 (Version 1)
Quarter: 2016Q2

REPORT INFORMATION
  Report Type: Spontaneous
  Country: US (occurrence: US)
  Receive Date: 20160614
  Receipt Date: 20160614
  Transmission Date: 20160815
  Serious: Yes (Hospitalization, Other)
  Sender: FDA-Public Use
  Company Number: US-NOVOPROD-480928

PATIENT
  Age: 53 Year
  Sex: Female
  Weight: 52.15 kg

DRUGS (3)
  1. NOVOLOG [Suspect]
     Active Substance: INSULIN ASPART
     Indication: TYPE 1 DIABETES MELLITUS
     Dosage: 0.5 U EVERY HOUR
     Route: 058
     Dates: start: 2005, end: 20160210
  2. ZOLPIDEM [Concomitant]
     Active Substance: ZOLPIDEM\ZOLPIDEM TARTRATE
     Indication: INSOMNIA
     Dosage: 5 MG, NIGHTLY AS NEEDED FOR SLEEP
  3. LOSARTAN. [Concomitant]
     Active Substance: LOSARTAN
     Indication: ANXIETY
     Dosage: 5 MG, TID PRN FOR ANXIETY

REACTIONS (7)
  - Hypothyroidism [Unknown]
  - Acute kidney injury [Unknown]
  - Diabetic ketoacidosis [Recovering/Resolving]
  - Hypovolaemia [Unknown]
  - Systemic inflammatory response syndrome [Unknown]
  - Product quality issue [Recovering/Resolving]
  - Hypotension [Unknown]

NARRATIVE: CASE EVENT DATE: 201602
